FAERS Safety Report 15948079 (Version 1)
Quarter: 2019Q1

REPORT INFORMATION
  Report Type: Spontaneous
  Country: BR (occurrence: BR)
  Receive Date: 20190211
  Receipt Date: 20190211
  Transmission Date: 20190417
  Serious: Yes (Hospitalization)
  Sender: FDA-Public Use
  Company Number: BR-BIOMARINAP-BR-2019-121656

PATIENT
  Age: 13 Year
  Sex: Female
  Weight: 18 kg

DRUGS (1)
  1. NAGLAZYME [Suspect]
     Active Substance: GALSULFASE
     Indication: MUCOPOLYSACCHARIDOSIS VI
     Dosage: 100 MILLILITER, QW
     Route: 042
     Dates: start: 20130729

REACTIONS (9)
  - Pharyngeal erythema [Recovered/Resolved]
  - Odynophagia [Recovered/Resolved]
  - Cough [Recovered/Resolved]
  - Vomiting [Not Recovered/Not Resolved]
  - Tonsillitis [Recovered/Resolved]
  - Pyrexia [Recovered/Resolved]
  - Salivary hypersecretion [Recovered/Resolved]
  - Rhonchi [Recovered/Resolved]
  - Pharyngitis [Recovered/Resolved]

NARRATIVE: CASE EVENT DATE: 20190120
